FAERS Safety Report 17307225 (Version 1)
Quarter: 2020Q1

REPORT INFORMATION
  Report Type: Spontaneous
  Country: US (occurrence: US)
  Receive Date: 20200122
  Receipt Date: 20200122
  Transmission Date: 20200409
  Serious: Yes (Hospitalization)
  Sender: FDA-Public Use
  Company Number: None

PATIENT
  Age: 49 Year
  Sex: Female
  Weight: 65.25 kg

DRUGS (4)
  1. AIMOVIG [Suspect]
     Active Substance: ERENUMAB-AOOE
     Indication: MIGRAINE
     Dosage: ?          QUANTITY:1 INJECTION(S);OTHER FREQUENCY:MONTHLY;OTHER ROUTE:SUBQ?
     Route: 058
     Dates: start: 20200116, end: 20200117
  2. IMITREX [Concomitant]
     Active Substance: SUMATRIPTAN SUCCINATE
  3. L LYSINE [Concomitant]
  4. BCP [Concomitant]

REACTIONS (9)
  - Arthralgia [None]
  - Hypoaesthesia [None]
  - Dizziness [None]
  - Migraine [None]
  - Dyspepsia [None]
  - Gastrointestinal pain [None]
  - Joint noise [None]
  - Chest pain [None]
  - Pain [None]

NARRATIVE: CASE EVENT DATE: 20200117
